FAERS Safety Report 13923468 (Version 1)
Quarter: 2017Q3

REPORT INFORMATION
  Report Type: Spontaneous
  Country: US (occurrence: None)
  Receive Date: 20170830
  Receipt Date: 20170830
  Transmission Date: 20171127
  Serious: Yes (Hospitalization, Disabling, Other)
  Sender: FDA-Public Use
  Company Number: None

PATIENT
  Age: 63 Year
  Sex: Female
  Weight: 47.63 kg

DRUGS (6)
  1. GADOLINIUM [Suspect]
     Active Substance: GADOLINIUM
  2. VITAMIN D3 [Concomitant]
     Active Substance: CHOLECALCIFEROL
  3. XANAX [Concomitant]
     Active Substance: ALPRAZOLAM
  4. ASPRIN [Concomitant]
     Active Substance: ASPIRIN
  5. RITUXAN [Concomitant]
     Active Substance: RITUXIMAB
  6. ZANTAC [Concomitant]
     Active Substance: RANITIDINE HYDROCHLORIDE

REACTIONS (3)
  - Cardiac disorder [None]
  - Gastrointestinal disorder [None]
  - Renal disorder [None]

NARRATIVE: CASE EVENT DATE: 20170814
